FAERS Safety Report 7355077-0 (Version None)
Quarter: 2011Q1

REPORT INFORMATION
  Report Type: 
  Country: None (occurrence: None)
  Receive Date: 20110316
  Receipt Date: 20110310
  Transmission Date: 20110831
  Serious: No
  Sender: FDA-Public Use
  Company Number: US-PFIZER INC-2011054053

PATIENT
  Sex: Female

DRUGS (1)
  1. SUTENT [Suspect]
     Indication: METASTATIC RENAL CELL CARCINOMA
     Dosage: UNK

REACTIONS (4)
  - SKIN BURNING SENSATION [None]
  - PAIN IN EXTREMITY [None]
  - ASPARTATE AMINOTRANSFERASE INCREASED [None]
  - SKIN EXFOLIATION [None]
